FAERS Safety Report 14742427 (Version 2)
Quarter: 2018Q2

REPORT INFORMATION
  Report Type: Report from Study
  Country: KR (occurrence: KR)
  Receive Date: 20180410
  Receipt Date: 20180619
  Transmission Date: 20180711
  Serious: Yes (Hospitalization, Other)
  Sender: FDA-Public Use
  Company Number: KR-BAYER-2014-144552

PATIENT
  Age: 31 Year
  Sex: Male

DRUGS (1)
  1. BETAFERON [Suspect]
     Active Substance: INTERFERON BETA-1B
     Indication: MULTIPLE SCLEROSIS
     Dosage: 1 ML, QOD
     Route: 058
     Dates: start: 20050201, end: 201803

REACTIONS (23)
  - Injection site swelling [Recovered/Resolved]
  - Injection site pain [Recovering/Resolving]
  - Decubitus ulcer [Recovering/Resolving]
  - Pain [None]
  - Myalgia [None]
  - Muscle necrosis [None]
  - Mass [Recovering/Resolving]
  - Dysuria [Not Recovered/Not Resolved]
  - Asthenia [Not Recovered/Not Resolved]
  - Muscle tightness [None]
  - Injection site pain [Not Recovered/Not Resolved]
  - Musculoskeletal stiffness [Recovering/Resolving]
  - Necrotising fasciitis [Recovering/Resolving]
  - Surgery [Recovering/Resolving]
  - General physical health deterioration [None]
  - Injection site mass [None]
  - Nasopharyngitis [None]
  - Injection site induration [None]
  - Injection site mass [Not Recovered/Not Resolved]
  - Carpal tunnel syndrome [None]
  - Pain in extremity [None]
  - Nasopharyngitis [Recovering/Resolving]
  - Injection site pain [None]

NARRATIVE: CASE EVENT DATE: 20151006
